FAERS Safety Report 5323686-6 (Version None)
Quarter: 2007Q2

REPORT INFORMATION
  Report Type: 
  Country: None (occurrence: None)
  Receive Date: 20070514
  Receipt Date: 20070508
  Transmission Date: 20071010
  Serious: Yes (Hospitalization)
  Sender: FDA-Public Use
  Company Number: US-ASTRAZENECA-2007UW11110

PATIENT
  Age: 16 Year
  Sex: Male

DRUGS (3)
  1. SEROQUEL [Suspect]
     Indication: BIPOLAR DISORDER
     Route: 048
     Dates: start: 20060101
  2. SEROQUEL [Suspect]
     Route: 048
     Dates: end: 20070401
  3. SEROQUEL [Suspect]
     Route: 048
     Dates: start: 20070401

REACTIONS (2)
  - ANGER [None]
  - ILL-DEFINED DISORDER [None]
